FAERS Safety Report 7887533-0 (Version None)
Quarter: 2011Q4

REPORT INFORMATION
  Report Type: 
  Country: None (occurrence: None)
  Receive Date: 20111103
  Receipt Date: 20111025
  Transmission Date: 20120403
  Serious: Yes (Hospitalization)
  Sender: FDA-Public Use
  Company Number: AU-BIOGENIDEC-2011BI038141

PATIENT
  Sex: Female

DRUGS (1)
  1. AVONEX [Suspect]
     Indication: MULTIPLE SCLEROSIS
     Route: 030

REACTIONS (5)
  - MOBILITY DECREASED [None]
  - MULTIPLE SCLEROSIS [None]
  - HYPOAESTHESIA [None]
  - URINARY INCONTINENCE [None]
  - PNEUMONIA [None]
